FAERS Safety Report 5940211-7 (Version None)
Quarter: 2008Q4

REPORT INFORMATION
  Report Type: 
  Country: None (occurrence: None)
  Receive Date: 20081104
  Receipt Date: 20081023
  Transmission Date: 20090506
  Serious: Yes (Death, Life-Threatening, Hospitalization, Other)
  Sender: FDA-Public Use
  Company Number: DE-ELI_LILLY_AND_COMPANY-DE200810002720

PATIENT
  Sex: Male
  Weight: 76 kg

DRUGS (1)
  1. GEMZAR [Suspect]
     Indication: PANCREATIC CARCINOMA
     Dosage: 1000 MG/M2, WEEKLY (1/W), 14 ADMINISTRATIONS
     Route: 042
     Dates: start: 20080528, end: 20080827

REACTIONS (4)
  - HAEMOLYTIC URAEMIC SYNDROME [None]
  - RENAL FAILURE ACUTE [None]
  - STAPHYLOCOCCAL INFECTION [None]
  - SUBCLAVIAN VEIN THROMBOSIS [None]
